FAERS Safety Report 21265000 (Version 2)
Quarter: 2022Q3

REPORT INFORMATION
  Report Type: Report from Study
  Country: ES (occurrence: ES)
  Receive Date: 20220829
  Receipt Date: 20220906
  Transmission Date: 20221026
  Serious: Yes (Hospitalization, Other)
  Sender: FDA-Public Use
  Company Number: ES-TAKEDA-2022TUS059247

PATIENT
  Age: 55 Year
  Sex: Female

DRUGS (8)
  1. ICATIBANT [Suspect]
     Active Substance: ICATIBANT ACETATE
     Indication: Hereditary angioedema
     Dosage: UNK
     Route: 065
     Dates: start: 20160129
  2. ICATIBANT [Suspect]
     Active Substance: ICATIBANT ACETATE
     Indication: Hereditary angioedema
     Dosage: UNK
     Route: 065
     Dates: start: 20160129
  3. DAPSONE [Concomitant]
     Active Substance: DAPSONE
     Indication: Product used for unknown indication
     Route: 065
  4. ACETAMINOPHEN [Concomitant]
     Active Substance: ACETAMINOPHEN
     Indication: Pain
     Dosage: 1 GRAM
     Route: 048
     Dates: start: 20160129
  5. PRIMPERAN [Concomitant]
     Active Substance: METOCLOPRAMIDE HYDROCHLORIDE
     Indication: Vomiting
     Dosage: UNK
     Route: 065
     Dates: start: 20160129
  6. PRIMPERAN [Concomitant]
     Active Substance: METOCLOPRAMIDE HYDROCHLORIDE
     Indication: Nausea
  7. ASPIRIN [Concomitant]
     Active Substance: ASPIRIN
     Indication: Seizure
     Dosage: `100 MILLIGRAM, QD
     Route: 048
     Dates: start: 20211227
  8. ATORVASTATIN [Concomitant]
     Active Substance: ATORVASTATIN
     Indication: Seizure
     Dosage: 40 MILLIGRAM, BID
     Route: 048
     Dates: start: 20211227

REACTIONS (1)
  - Seizure [Recovered/Resolved]

NARRATIVE: CASE EVENT DATE: 20211220
